FAERS Safety Report 21287020 (Version 6)
Quarter: 2023Q2

REPORT INFORMATION
  Report Type: Report from Study
  Country: PE (occurrence: PE)
  Receive Date: 20220902
  Receipt Date: 20230503
  Transmission Date: 20230721
  Serious: Yes (Other)
  Sender: FDA-Public Use
  Company Number: PE-NOVARTISPH-NVSC2022PE188909

PATIENT
  Age: 68 Year
  Sex: Female

DRUGS (4)
  1. KISQALI [Suspect]
     Active Substance: RIBOCICLIB
     Indication: Breast cancer metastatic
     Dosage: 600 MG, QD
     Route: 048
     Dates: start: 20220718
  2. KISQALI [Suspect]
     Active Substance: RIBOCICLIB
     Dosage: UNK (3 IN THE MORNING AND 2 AT NIGHT)
     Route: 065
  3. KISQALI [Suspect]
     Active Substance: RIBOCICLIB
     Dosage: 1000 MG, QD (3 IN THE MORNING AND 2 AT NIGHT)
     Route: 048
     Dates: start: 20221003
  4. KISQALI [Suspect]
     Active Substance: RIBOCICLIB
     Dosage: 400 MG, QD
     Route: 048
     Dates: start: 20220718

REACTIONS (17)
  - Diabetes mellitus [Unknown]
  - Osteoarthritis [Unknown]
  - Synovial cyst [Unknown]
  - Influenza [Unknown]
  - Decreased immune responsiveness [Unknown]
  - Myalgia [Unknown]
  - Anxiety [Unknown]
  - Thyroid disorder [Unknown]
  - Gait disturbance [Unknown]
  - Haemoglobin decreased [Unknown]
  - Nasopharyngitis [Not Recovered/Not Resolved]
  - Malaise [Unknown]
  - Diarrhoea [Recovering/Resolving]
  - Bronchitis [Unknown]
  - Incorrect dose administered [Unknown]
  - Inappropriate schedule of product administration [Unknown]
  - Off label use [Unknown]

NARRATIVE: CASE EVENT DATE: 20220816
